FAERS Safety Report 9880384 (Version 1)
Quarter: 2014Q1

REPORT INFORMATION
  Report Type: Spontaneous
  Country: US (occurrence: US)
  Receive Date: 20140207
  Receipt Date: 20140207
  Transmission Date: 20141002
  Serious: No
  Sender: FDA-Public Use
  Company Number: US-B.I. PHARMACEUTICALS,INC./RIDGEFIELD-2014-BI-03720BP

PATIENT
  Sex: Male

DRUGS (3)
  1. SPIRIVA [Suspect]
     Indication: CHRONIC OBSTRUCTIVE PULMONARY DISEASE
  2. COMBIVENT [Suspect]
     Indication: PRODUCT USED FOR UNKNOWN INDICATION
     Dosage: DOSE PER APPLICATION: 120 MICROGRAM PER 20 MICROGRAM
  3. FLOVENT [Concomitant]
     Dosage: FORMULATION: INHALER
     Route: 055

REACTIONS (3)
  - Dyspnoea [Unknown]
  - Drug effect decreased [Unknown]
  - Product quality issue [Unknown]
